FAERS Safety Report 4984217-3 (Version None)
Quarter: 2006Q2

REPORT INFORMATION
  Report Type: 
  Country: None (occurrence: None)
  Receive Date: 20060420
  Receipt Date: 20060410
  Transmission Date: 20061013
  Serious: Yes (Other)
  Sender: FDA-Public Use
  Company Number: 2006046460

PATIENT
  Age: 86 Year
  Sex: Male

DRUGS (6)
  1. ALPRAZOLAM [Suspect]
     Indication: INSOMNIA
     Dosage: 0.25 MG (0.25 MG, 1 IN 1 D), ORAL
     Route: 048
     Dates: start: 20010101
  2. ALL OTHER THERAPEUTIC PRODUCTS (ALL OTHER THERAPEUTIC PRODUCTS) [Concomitant]
  3. ENALAPRIL MALEATE [Concomitant]
  4. KEFLEX [Concomitant]
  5. ASPIRIN [Concomitant]
  6. AMIODARONE HYDROCHLORIDE [Concomitant]

REACTIONS (9)
  - BLOOD PRESSURE DECREASED [None]
  - CARDIAC DISORDER [None]
  - CARDIAC PACEMAKER INSERTION [None]
  - DIZZINESS [None]
  - DRUG EFFECT DECREASED [None]
  - LABYRINTHITIS [None]
  - PHARMACEUTICAL PRODUCT COMPLAINT [None]
  - SOMNOLENCE [None]
  - SYNCOPE [None]
